FAERS Safety Report 4799767-2 (Version None)
Quarter: 2005Q4

REPORT INFORMATION
  Report Type: 
  Country: None (occurrence: None)
  Receive Date: 20051012
  Receipt Date: 20051012
  Transmission Date: 20060501
  Serious: Yes (Hospitalization)
  Sender: FDA-Public Use
  Company Number: None

PATIENT
  Sex: Male
  Weight: 158.759 kg

DRUGS (9)
  1. COUMADIN [Suspect]
     Indication: ANTICOAGULANT THERAPY
     Dosage: 4MG  PO  QD   (THERAPY DATES: PRIOR TO ADMISSION)
     Route: 048
  2. GLUCOPHAGE XR [Concomitant]
  3. ZETIA [Concomitant]
  4. TOPROL-XL [Concomitant]
  5. DIOVAN HCT [Concomitant]
  6. ACIPHEX [Concomitant]
  7. ACTOS [Concomitant]
  8. PLAVIX [Concomitant]
  9. LOVASTATIN [Concomitant]

REACTIONS (2)
  - COAGULOPATHY [None]
  - EPISTAXIS [None]
